FAERS Safety Report 5493284-2 (Version None)
Quarter: 2007Q4

REPORT INFORMATION
  Report Type: 
  Country: None (occurrence: None)
  Receive Date: 20071022
  Receipt Date: 20071022
  Transmission Date: 20080405
  Serious: No
  Sender: FDA-Public Use
  Company Number: None

PATIENT
  Sex: Male
  Weight: 106.5953 kg

DRUGS (13)
  1. REQUIP CR [Suspect]
     Indication: SEXUAL DYSFUNCTION
     Dosage: 1 MG BID PO
     Route: 048
     Dates: start: 20070702, end: 20070808
  2. FLUOXETINE [Concomitant]
  3. DEPAKOTE [Concomitant]
  4. FUROSEMIDE [Concomitant]
  5. LISINOPRIL [Concomitant]
  6. NIFEDIPINE [Concomitant]
  7. PLAVIX [Concomitant]
  8. POTASSIUM CHLORIDE [Concomitant]
  9. PROTONIX [Concomitant]
  10. STRATTERA [Concomitant]
  11. VYTORIN [Concomitant]
  12. VITAMIN B6 [Concomitant]
  13. FISH OIL [Concomitant]

REACTIONS (4)
  - AGITATION [None]
  - CONTUSION [None]
  - ROAD TRAFFIC ACCIDENT [None]
  - SUDDEN ONSET OF SLEEP [None]
